FAERS Safety Report 13030887 (Version 3)
Quarter: 2016Q4

REPORT INFORMATION
  Report Type: Spontaneous
  Country: VE (occurrence: VE)
  Receive Date: 20161215
  Receipt Date: 20161230
  Transmission Date: 20170207
  Serious: Yes (Other)
  Sender: FDA-Public Use
  Company Number: VE-BIOGEN-2016BI00314112

PATIENT
  Sex: Female

DRUGS (2)
  1. TYSABRI [Suspect]
     Active Substance: NATALIZUMAB
     Indication: MULTIPLE SCLEROSIS
     Route: 042
     Dates: start: 201101
  2. TYSABRI [Suspect]
     Active Substance: NATALIZUMAB
     Dosage: 45 DOSES TOTAL
     Route: 042
     Dates: start: 201103, end: 20161027

REACTIONS (1)
  - Progressive multifocal leukoencephalopathy [Unknown]
